FAERS Safety Report 5301729-3 (Version None)
Quarter: 2007Q2

REPORT INFORMATION
  Report Type: 
  Country: None (occurrence: None)
  Receive Date: 20070419
  Receipt Date: 20070410
  Transmission Date: 20071010
  Serious: Yes (Other)
  Sender: FDA-Public Use
  Company Number: BR-JNJFOC-20070400425

PATIENT
  Age: 23 Year
  Sex: Female
  Weight: 50 kg

DRUGS (2)
  1. HALDOL [Suspect]
     Indication: SUICIDE ATTEMPT
     Dosage: 8 TABLETS, SINGLE DOSE
     Route: 048
  2. PHENOBARBITAL TAB [Concomitant]
     Route: 048

REACTIONS (3)
  - OVERDOSE [None]
  - SOMNOLENCE [None]
  - SUICIDE ATTEMPT [None]
